FAERS Safety Report 21019121 (Version 1)
Quarter: 2022Q2

REPORT INFORMATION
  Report Type: Report from Study
  Country: US (occurrence: US)
  Receive Date: 20220628
  Receipt Date: 20220628
  Transmission Date: 20220721
  Serious: Yes (Other)
  Sender: FDA-Public Use
  Company Number: US-JAZZ-2022-US-007671

PATIENT
  Age: 33 Year
  Sex: Female

DRUGS (8)
  1. XYREM [Suspect]
     Active Substance: SODIUM OXYBATE
     Indication: Narcolepsy
     Dosage: 2.25 GRAM, BID
     Route: 048
     Dates: start: 200502, end: 200503
  2. XYREM [Suspect]
     Active Substance: SODIUM OXYBATE
     Indication: Cataplexy
     Dosage: DOSE ADJUSTMENT
     Route: 048
     Dates: start: 200503, end: 200707
  3. XYREM [Suspect]
     Active Substance: SODIUM OXYBATE
     Indication: Somnolence
     Dosage: 4.5 GRAM, BID
     Route: 048
     Dates: start: 200707
  4. CYTOMEL [Concomitant]
     Active Substance: LIOTHYRONINE SODIUM
     Dosage: UNK
     Dates: start: 20160105
  5. NUVIGIL [Concomitant]
     Active Substance: ARMODAFINIL
     Dosage: UNK
     Dates: start: 20160105
  6. PROPRANOLOL [Concomitant]
     Active Substance: PROPRANOLOL HYDROCHLORIDE
     Dosage: UNK
     Dates: start: 20180201
  7. OXYCODONE HYDROCHLORIDE [Concomitant]
     Active Substance: OXYCODONE HYDROCHLORIDE
     Dosage: UNK
     Dates: start: 20181025
  8. NORCO [Concomitant]
     Active Substance: ACETAMINOPHEN\HYDROCODONE BITARTRATE
     Dosage: 5-325
     Dates: start: 20220216

REACTIONS (2)
  - Lyme disease [Not Recovered/Not Resolved]
  - Hand fracture [Unknown]

NARRATIVE: CASE EVENT DATE: 20140101
